FAERS Safety Report 8557071-0 (Version None)
Quarter: 2012Q3

REPORT INFORMATION
  Report Type: 
  Country: None (occurrence: None)
  Receive Date: 20120720
  Receipt Date: 20120710
  Transmission Date: 20120928
  Serious: Yes (Hospitalization)
  Sender: FDA-Public Use
  Company Number: DSU-2012-05478

PATIENT
  Age: 67 Year
  Sex: Male
  Weight: 108.5911 kg

DRUGS (4)
  1. METFORMIN HCL [Concomitant]
  2. AZOR [Suspect]
     Indication: HYPERTENSION
     Dosage: 5/40MG (QD), PER ORAL, 5/40MG (QD), PER ORAL
     Route: 048
     Dates: start: 20120501
  3. LEVOXYL (LEVOTHYROXINE SODIUM) (LEVOTHYROXINE SODIUM) [Concomitant]
  4. LOTREL (AMLODIPINE, BENAZEPRIL HYDROCHLORIDE) (AMLODIPINE, BENAZEPRIL [Concomitant]

REACTIONS (7)
  - DYSPNOEA [None]
  - CHEST DISCOMFORT [None]
  - CARDIAC VALVE DISEASE [None]
  - DIZZINESS [None]
  - HYPOTENSION [None]
  - BLOOD GLUCOSE INCREASED [None]
  - HEADACHE [None]
